FAERS Safety Report 9483785 (Version 1)
Quarter: 2013Q3

REPORT INFORMATION
  Report Type: Spontaneous
  Country: CA (occurrence: CA)
  Receive Date: 20130828
  Receipt Date: 20130828
  Transmission Date: 20140515
  Serious: Yes (Disabling, Other)
  Sender: FDA-Public Use
  Company Number: CA-AMGEN-KDL338862

PATIENT
  Age: 73 Year
  Sex: Female

DRUGS (6)
  1. ENBREL [Suspect]
     Indication: RHEUMATOID ARTHRITIS
     Dosage: UNK UNK, QWK
     Route: 065
     Dates: start: 20090129
  2. ACTONEL [Concomitant]
     Dosage: UNK UNK, QWK
  3. METHOTREXATE [Concomitant]
     Dosage: UNK UNK, QD
     Route: 048
  4. PREDNISONE [Concomitant]
     Dosage: 5 MG, UNK
  5. FOLIC ACID [Concomitant]
     Dosage: 5 MG, UNK
  6. OMEPRAZOLE [Concomitant]
     Dosage: UNK UNK, PRN

REACTIONS (2)
  - Deafness [Unknown]
  - Dizziness [Unknown]
